FAERS Safety Report 4390187-1 (Version None)
Quarter: 2004Q2

REPORT INFORMATION
  Report Type: 
  Country: None (occurrence: None)
  Receive Date: 20040630
  Receipt Date: 20040617
  Transmission Date: 20050107
  Serious: No
  Sender: FDA-Public Use
  Company Number: 04H-163-0264429-00

PATIENT
  Age: 65 Year
  Sex: Female
  Weight: 96.1626 kg

DRUGS (5)
  1. MARCAINE [Suspect]
     Indication: OSTEOARTHRITIS
     Dosage: ONCE IN EACH KNEE, 2 CC OF UNKNOWN DOSE, INJECTION
     Dates: start: 20040617, end: 20040617
  2. LIDOCAINE 1% [Suspect]
     Indication: OSTEOARTHRITIS
     Dosage: 20 MG, 20 MG/2 CC, ONCE IN EACH KNEE, INJECTION
     Dates: start: 20040617, end: 20040617
  3. DEXAMETHASONE [Suspect]
     Indication: OSTEOARTHRITIS
     Dosage: 20 MG, 20 MG/ 2 CC, ONCE IN EACH KNEE, INJECTION
     Dates: start: 20040617, end: 20040617
  4. SERTRALINE HYDROCHLORIDE [Concomitant]
  5. TRAZODONE HCL [Concomitant]

REACTIONS (8)
  - AGITATION [None]
  - BURNING SENSATION [None]
  - DYSPNOEA [None]
  - HYPERSENSITIVITY [None]
  - INJECTION SITE REACTION [None]
  - MEDICATION ERROR [None]
  - PANIC ATTACK [None]
  - PRURITUS GENERALISED [None]
